FAERS Safety Report 7608730-5 (Version None)
Quarter: 2011Q3

REPORT INFORMATION
  Report Type: 
  Country: None (occurrence: None)
  Receive Date: 20110713
  Receipt Date: 20110713
  Transmission Date: 20111222
  Serious: Yes (Other)
  Sender: FDA-Public Use
  Company Number: None

PATIENT
  Age: 23 Year
  Sex: Male
  Weight: 70 kg

DRUGS (1)
  1. PROSCAR [Suspect]
     Dosage: 1.25MG 1/4 TABLET P DAY PO
     Route: 048

REACTIONS (9)
  - INSOMNIA [None]
  - ANHEDONIA [None]
  - FATIGUE [None]
  - SEMEN VISCOSITY DECREASED [None]
  - LIBIDO DECREASED [None]
  - DEPRESSION [None]
  - SEMEN VOLUME DECREASED [None]
  - ERECTILE DYSFUNCTION [None]
  - ANORGASMIA [None]
